FAERS Safety Report 5740768-5 (Version None)
Quarter: 2008Q2

REPORT INFORMATION
  Report Type: 
  Country: None (occurrence: None)
  Receive Date: 20080515
  Receipt Date: 20080225
  Transmission Date: 20081010
  Serious: No
  Sender: FDA-Public Use
  Company Number: WAES 0801USA00451

PATIENT
  Age: 46 Year
  Sex: Male
  Weight: 100.6985 kg

DRUGS (10)
  1. TAB ISENTRESS [Suspect]
     Indication: HIV INFECTION
     Dosage: 400 MG/DAILY/PO; 400 MG/DAILY/PO
     Route: 048
     Dates: start: 20071105
  2. TAB ISENTRESS [Suspect]
     Indication: HIV INFECTION
     Dosage: 400 MG/DAILY/PO; 400 MG/DAILY/PO
     Route: 048
     Dates: start: 20071126
  3. AMBIEN CR [Concomitant]
  4. DILANTIN [Concomitant]
  5. DIOVAN HCT [Concomitant]
  6. EPZICOM [Concomitant]
  7. FLOMAX (MORNIFLUMATE) [Concomitant]
  8. LEXAPRO [Concomitant]
  9. NORVIR [Concomitant]
  10. LACTULOSE [Concomitant]

REACTIONS (1)
  - RASH MACULO-PAPULAR [None]
